FAERS Safety Report 18717658 (Version 1)
Quarter: 2021Q1

REPORT INFORMATION
  Report Type: Spontaneous
  Country: US (occurrence: US)
  Receive Date: 20210108
  Receipt Date: 20210108
  Transmission Date: 20210419
  Serious: Yes (Death)
  Sender: FDA-Public Use
  Company Number: None

PATIENT
  Age: 45 Year
  Sex: Male

DRUGS (19)
  1. ATORVASTATIN 20MG [Concomitant]
     Active Substance: ATORVASTATIN
     Dates: start: 20200529, end: 20201218
  2. DEXAMETHASONE 4MG [Concomitant]
     Active Substance: DEXAMETHASONE
     Dates: start: 20200529, end: 20201218
  3. GABAPENTIN 600MG [Concomitant]
     Active Substance: GABAPENTIN
     Dates: start: 20200529, end: 20201218
  4. TRAZODONE [Concomitant]
     Active Substance: TRAZODONE HYDROCHLORIDE
     Dates: start: 20200529, end: 20201218
  5. BACTRIM 400?80MG [Concomitant]
     Dates: start: 20200529, end: 20201218
  6. BUSPAR 10MG [Concomitant]
     Dates: start: 20200529, end: 20201218
  7. SPIRONOLACTONE 25MG [Concomitant]
     Active Substance: SPIRONOLACTONE
     Dates: start: 20200529, end: 20201218
  8. AMBIEN [Concomitant]
     Active Substance: ZOLPIDEM TARTRATE
     Dates: start: 20200529, end: 20201218
  9. TEMOZOLOMIDE. [Suspect]
     Active Substance: TEMOZOLOMIDE
     Indication: GLIOBLASTOMA MULTIFORME
     Route: 048
     Dates: start: 20200806, end: 20201218
  10. TEMOZOLOMIDE. [Suspect]
     Active Substance: TEMOZOLOMIDE
     Indication: GLIOBLASTOMA MULTIFORME
     Route: 048
     Dates: start: 20200806, end: 20201218
  11. KEPPRA [Concomitant]
     Active Substance: LEVETIRACETAM
     Dates: start: 20200529, end: 20201218
  12. VALPROIC ACID 250MG/5ML [Concomitant]
     Active Substance: VALPROIC ACID
     Dates: start: 20201110, end: 20201218
  13. FLOMAX 0.4MG [Concomitant]
     Dates: start: 20200529, end: 20201218
  14. OMEPRAZOLE 20MG [Concomitant]
     Active Substance: OMEPRAZOLE
     Dates: start: 20200529, end: 20201218
  15. SERTRALINE 50MG [Concomitant]
     Active Substance: SERTRALINE HYDROCHLORIDE
     Dates: start: 20200529, end: 20201218
  16. LEVOTHYROXINE 0.025MG [Concomitant]
     Dates: start: 20200529, end: 20201218
  17. SEROQUEL [Concomitant]
     Active Substance: QUETIAPINE FUMARATE
     Dates: start: 20200529, end: 20201218
  18. TOPIRAMATE 25MG [Concomitant]
     Active Substance: TOPIRAMATE
     Dates: start: 20200529, end: 20201218
  19. ZOFRAN [Concomitant]
     Active Substance: ONDANSETRON HYDROCHLORIDE
     Dates: start: 20200529, end: 20201218

REACTIONS (1)
  - Death [None]

NARRATIVE: CASE EVENT DATE: 20201218
